FAERS Safety Report 8622492-4 (Version None)
Quarter: 2012Q3

REPORT INFORMATION
  Report Type: 
  Country: None (occurrence: None)
  Receive Date: 20120827
  Receipt Date: 20120822
  Transmission Date: 20120928
  Serious: No
  Sender: FDA-Public Use
  Company Number: US-PFIZER INC-2012207469

PATIENT
  Sex: Female

DRUGS (3)
  1. PRISTIQ [Suspect]
     Dosage: 50 MG, UNK
  2. PRISTIQ [Suspect]
     Dosage: 50 MG, EVERY THIRD DAY
     Dates: end: 20120801
  3. PRISTIQ [Suspect]
     Dosage: 50 MG, ALTERNATE DAY

REACTIONS (1)
  - FEAR [None]
